FAERS Safety Report 4946192-7 (Version None)
Quarter: 2006Q1

REPORT INFORMATION
  Report Type: 
  Country: None (occurrence: None)
  Receive Date: 20060118
  Receipt Date: 20050201
  Transmission Date: 20060701
  Serious: Yes (Death)
  Sender: FDA-Public Use
  Company Number: US-JNJFOC-20041206830

PATIENT
  Age: 79 Year
  Sex: Female

DRUGS (1)
  1. DOXIL (DOXORUBICIN HYDROCHLORIDE) LIPOSME INJECTION [Suspect]
     Indication: ENDOMETRIAL CANCER
     Dosage: 80 MG, 1 IN 28 DAY, INTRAVENOUS
     Route: 042

REACTIONS (3)
  - ENDOMETRIAL CANCER [None]
  - HERPES ZOSTER [None]
  - MALIGNANT NEOPLASM PROGRESSION [None]
